FAERS Safety Report 25028600 (Version 1)
Quarter: 2025Q1

REPORT INFORMATION
  Report Type: Spontaneous
  Country: DE (occurrence: DE)
  Receive Date: 20250302
  Receipt Date: 20250302
  Transmission Date: 20250409
  Serious: Yes (Other)
  Sender: AUROBINDO
  Company Number: DE-PROCTER+GAMBLE-PH25000635

PATIENT
  Age: 35 Year
  Sex: Female
  Weight: 65 kg

DRUGS (12)
  1. MIRTAZAPINE [Suspect]
     Active Substance: MIRTAZAPINE
     Indication: Product used for unknown indication
     Dosage: 7 DOSAGE FORM, ONCE A DAY (7 TABLET, 1 ONLY, OVER 10 HOURS, LIKELY EXPOSURE, 1 ONLY, EXPOSURE WITH T
     Route: 048
     Dates: start: 20250122, end: 20250122
  2. MIRTAZAPINE [Suspect]
     Active Substance: MIRTAZAPINE
     Route: 048
  3. RAMIPRIL [Suspect]
     Active Substance: RAMIPRIL
     Indication: Product used for unknown indication
     Dosage: 7 DOSAGE FORM, ONCE A DAY (7 TABLET, 1 ONLY, OVER 10 HOURS, LIKELY EXPOSURE, 2.5)
     Route: 048
     Dates: start: 20250122, end: 20250122
  4. RAMIPRIL [Suspect]
     Active Substance: RAMIPRIL
     Route: 048
  5. DULOXETINE [Suspect]
     Active Substance: DULOXETINE
     Indication: Product used for unknown indication
     Dosage: 7 DOSAGE FORM, ONCE A DAY (7 TABLET, 1 ONLY, LIKELY EXPOSURE, OVER 10 HOURS, 30)
     Route: 048
     Dates: start: 20250122, end: 20250122
  6. DULOXETINE [Suspect]
     Active Substance: DULOXETINE
     Route: 048
  7. LEVOTHYROXINE [Suspect]
     Active Substance: LEVOTHYROXINE
     Indication: Product used for unknown indication
     Route: 048
     Dates: start: 20250122, end: 20250122
  8. LEVOTHYROXINE [Suspect]
     Active Substance: LEVOTHYROXINE
     Route: 048
  9. LEVOTHYROXINE SODIUM [Suspect]
     Active Substance: LEVOTHYROXINE SODIUM
     Indication: Product used for unknown indication
     Dosage: 7 DOSAGE FORM, ONCE A DAY (7 TABLET, 1 ONLY, OVER 10 HOURS, LIKELY EXPOSURE)
     Route: 048
     Dates: start: 20250122, end: 20250122
  10. LEVOTHYROXINE SODIUM [Suspect]
     Active Substance: LEVOTHYROXINE SODIUM
     Route: 048
  11. CHOLECALCIFEROL\CHOLESTEROL [Suspect]
     Active Substance: CHOLECALCIFEROL\CHOLESTEROL
     Indication: Product used for unknown indication
     Dosage: 7 DOSAGE FORM, ONCE A DAY (7 TABLET (SUBSTANCE NOT WITH RESPONSE), 1 ONLY, LIKELY EXPOSURE, OVER 10
     Route: 048
     Dates: start: 20250122, end: 20250122
  12. CHOLECALCIFEROL\CHOLESTEROL [Suspect]
     Active Substance: CHOLECALCIFEROL\CHOLESTEROL
     Route: 048

REACTIONS (14)
  - Serotonin syndrome [Recovering/Resolving]
  - Tachycardia [Recovering/Resolving]
  - Salivary hypersecretion [Recovering/Resolving]
  - Confusional state [Recovering/Resolving]
  - Hallucination, visual [Recovering/Resolving]
  - Delirium [Recovering/Resolving]
  - Electrocardiogram QT prolonged [Recovering/Resolving]
  - Cerebellar atrophy [Recovering/Resolving]
  - Abnormal behaviour [Recovering/Resolving]
  - Agitation [Recovering/Resolving]
  - Dysarthria [Recovering/Resolving]
  - Drug level increased [Recovering/Resolving]
  - Restlessness [Recovering/Resolving]
  - Overdose [Unknown]

NARRATIVE: CASE EVENT DATE: 20250122
